FAERS Safety Report 10741311 (Version 2)
Quarter: 2015Q1

REPORT INFORMATION
  Report Type: Spontaneous
  Country: CZ (occurrence: CZ)
  Receive Date: 20150127
  Receipt Date: 20150224
  Transmission Date: 20150721
  Serious: Yes (Death, Hospitalization, Other)
  Sender: FDA-Public Use
  Company Number: CZ-ELI_LILLY_AND_COMPANY-CZ201501007830

PATIENT
  Sex: Female

DRUGS (9)
  1. METYPRED                           /00049601/ [Concomitant]
     Active Substance: METHYLPREDNISOLONE
     Dosage: 4 MG, UNKNOWN
     Route: 065
  2. FORSTEO [Suspect]
     Active Substance: TERIPARATIDE
     Indication: OSTEOPOROSIS
     Dosage: 20 UG, QD
     Route: 058
     Dates: start: 20140605
  3. FORSTEO [Suspect]
     Active Substance: TERIPARATIDE
     Indication: OSTEOPOROTIC FRACTURE
  4. APO OME [Concomitant]
     Dosage: UNK, UNKNOWN
     Route: 065
  5. VITAMIN E NOS [Concomitant]
     Dosage: UNK, UNKNOWN
     Route: 065
  6. VIGANTOL                           /00318501/ [Concomitant]
     Dosage: UNK, UNKNOWN
     Route: 065
  7. VESSEL DUE [Concomitant]
     Dosage: UNK, UNKNOWN
     Route: 065
  8. ENELBIN                            /00247502/ [Concomitant]
     Dosage: UNK, UNKNOWN
     Route: 065
  9. LOMIR [Concomitant]
     Dosage: UNK, UNKNOWN
     Route: 065

REACTIONS (1)
  - Lung adenocarcinoma [Fatal]
